FAERS Safety Report 5879725-7 (Version None)
Quarter: 2008Q3

REPORT INFORMATION
  Report Type: 
  Country: None (occurrence: None)
  Receive Date: 20080912
  Receipt Date: 20080905
  Transmission Date: 20090109
  Serious: Yes (Hospitalization, Other)
  Sender: FDA-Public Use
  Company Number: US-MERCK-0605USA04642

PATIENT
  Age: 67 Year
  Sex: Female

DRUGS (16)
  1. FOSAMAX [Suspect]
     Indication: OSTEOPOROSIS
     Route: 048
     Dates: start: 20000101, end: 20050501
  2. FOSAMAX [Suspect]
     Route: 048
     Dates: start: 19960902
  3. FOSAMAX [Suspect]
     Route: 065
     Dates: start: 20000101
  4. EVISTA [Concomitant]
     Indication: OSTEOPOROSIS
     Route: 065
     Dates: start: 20011115
  5. SYNTHROID [Concomitant]
     Indication: HYPOTHYROIDISM
     Route: 065
     Dates: start: 19750101
  6. LIPITOR [Concomitant]
     Indication: BLOOD CHOLESTEROL INCREASED
     Route: 065
     Dates: start: 20001208
  7. SF 5000 PLUS [Concomitant]
     Route: 065
     Dates: start: 20020730, end: 20021218
  8. PROCHLORPERAZINE [Concomitant]
     Indication: VOMITING
     Route: 065
     Dates: start: 20021111
  9. TRANSDERM SCOP [Concomitant]
     Indication: NAUSEA
     Route: 065
     Dates: start: 20021115
  10. VALTREX [Concomitant]
     Route: 065
     Dates: start: 20031121
  11. PENICILLIN V [Concomitant]
     Route: 065
     Dates: start: 20040930
  12. OXYCODONE [Concomitant]
     Route: 065
     Dates: start: 20040930
  13. ACETAMINOPHEN AND PROPOXYPHENE HYDROCHLORIDE [Concomitant]
     Route: 065
     Dates: start: 20041018
  14. HYDROCODONE BITARTRATE [Concomitant]
     Route: 065
     Dates: start: 20041020
  15. CALCIUM (UNSPECIFIED) [Concomitant]
     Route: 065
  16. LEVAQUIN [Concomitant]
     Route: 065

REACTIONS (10)
  - ANXIETY [None]
  - DEPRESSION [None]
  - FISTULA DISCHARGE [None]
  - MYALGIA [None]
  - OSTEOMYELITIS [None]
  - OSTEONECROSIS [None]
  - PAIN [None]
  - SUICIDAL IDEATION [None]
  - TOOTH INFECTION [None]
  - WEIGHT DECREASED [None]
